FAERS Safety Report 9222860 (Version 3)
Quarter: 2013Q2

REPORT INFORMATION
  Report Type: Spontaneous
  Country: US (occurrence: None)
  Receive Date: 20120914
  Receipt Date: 20130410
  Transmission Date: 20140414
  Serious: Yes (Hospitalization, Other)
  Sender: FDA-Public Use
  Company Number: JPI-P-020715

PATIENT
  Age: 16 Year
  Sex: Female

DRUGS (9)
  1. XYREM [Suspect]
     Indication: CATAPLEXY
     Dosage: 4.5 GM (2.25 GM, 2 IN 1 D), ORAL
     Route: 048
     Dates: start: 20120222
  2. FLUOXETINE HYDROCHLORIDE [Suspect]
     Indication: PRODUCT USED FOR UNKNOWN INDICATION
     Dosage: STOPPED
  3. AMITRIPTYLINE [Suspect]
     Indication: PRODUCT USED FOR UNKNOWN INDICATION
     Dates: end: 2012
  4. SPRINTEC [Concomitant]
  5. EFFEXOR [Concomitant]
  6. PROVIGIL (MODAFINIL) [Concomitant]
  7. RISPERDAL [Concomitant]
  8. VENLAFAXINE [Concomitant]
  9. ADDERALL [Concomitant]

REACTIONS (6)
  - Depression [None]
  - Hallucination [None]
  - Condition aggravated [None]
  - Hallucination, auditory [None]
  - Anxiety [None]
  - Nightmare [None]
